FAERS Safety Report 8385495-3 (Version None)
Quarter: 2012Q2

REPORT INFORMATION
  Report Type: 
  Country: None (occurrence: None)
  Receive Date: 20120525
  Receipt Date: 20120521
  Transmission Date: 20120825
  Serious: No
  Sender: FDA-Public Use
  Company Number: US-BIOGENIDEC-2012BI017943

PATIENT
  Sex: Female

DRUGS (2)
  1. TYSABRI [Suspect]
     Indication: MULTIPLE SCLEROSIS
     Route: 042
     Dates: start: 20041223, end: 20050225
  2. TYSABRI [Suspect]
     Route: 042
     Dates: start: 20060802, end: 20120424

REACTIONS (9)
  - ASTHMA [None]
  - BRONCHITIS [None]
  - EAR INFECTION [None]
  - PAIN IN EXTREMITY [None]
  - HYPERTENSION [None]
  - WHEEZING [None]
  - DIABETES MELLITUS [None]
  - INCREASED UPPER AIRWAY SECRETION [None]
  - FATIGUE [None]
